FAERS Safety Report 6338184-0 (Version None)
Quarter: 2009Q3

REPORT INFORMATION
  Report Type: 
  Country: None (occurrence: None)
  Receive Date: 20090902
  Receipt Date: 20090828
  Transmission Date: 20100115
  Serious: Yes (Death, Other)
  Sender: FDA-Public Use
  Company Number: US-CELGENEUS-163-20785-09071464

PATIENT
  Sex: Male

DRUGS (16)
  1. THALOMID [Suspect]
     Indication: GRAFT VERSUS HOST DISEASE
     Route: 048
     Dates: start: 20090626, end: 20090703
  2. THALOMID [Suspect]
     Route: 048
     Dates: start: 20090522, end: 20090625
  3. THALOMID [Suspect]
     Indication: JUVENILE CHRONIC MYELOMONOCYTIC LEUKAEMIA
  4. ALBUTEROL [Concomitant]
     Indication: DRUG USE FOR UNKNOWN INDICATION
     Route: 055
  5. AMLODIPINE [Concomitant]
     Indication: HYPERTENSION
     Route: 048
  6. CEFTAZIDIME [Concomitant]
     Route: 065
  7. BACTRIM [Concomitant]
     Route: 048
  8. CELLCEPT [Concomitant]
     Indication: CHRONIC GRAFT VERSUS HOST DISEASE
     Route: 051
  9. PROGRAF [Concomitant]
     Route: 051
  10. TPN [Concomitant]
     Indication: NUTRITIONAL SUPPORT
     Route: 065
  11. LABETALOL HCL [Concomitant]
     Indication: HYPERTENSION
     Route: 048
  12. SOLU-MEDROL [Concomitant]
     Route: 051
  13. MICAFUNGIN [Concomitant]
     Indication: ANTIFUNGAL PROPHYLAXIS
     Route: 051
  14. PANTOPRAZOLE SODIUM [Concomitant]
     Indication: GASTRITIS PROPHYLAXIS
     Route: 051
  15. TOBRAMYCIN [Concomitant]
     Route: 051
  16. URSODIOL [Concomitant]
     Route: 048

REACTIONS (3)
  - GRAFT VERSUS HOST DISEASE [None]
  - NEOPLASM PROGRESSION [None]
  - PNEUMONITIS [None]
